FAERS Safety Report 8515284-8 (Version None)
Quarter: 2012Q3

REPORT INFORMATION
  Report Type: 
  Country: None (occurrence: None)
  Receive Date: 20120717
  Receipt Date: 20110420
  Transmission Date: 20120928
  Serious: Yes (Death)
  Sender: FDA-Public Use
  Company Number: US-ROCHE-1086934

PATIENT
  Sex: Female

DRUGS (1)
  1. LUCENTIS [Suspect]
     Indication: DIABETIC RETINOPATHY
     Dosage: DOSE-0.05
     Route: 050
     Dates: start: 20081121, end: 20100810

REACTIONS (1)
  - RENAL FAILURE [None]
